FAERS Safety Report 4606784-1 (Version None)
Quarter: 2005Q1

REPORT INFORMATION
  Report Type: 
  Country: None (occurrence: None)
  Receive Date: 20050309
  Receipt Date: 20050221
  Transmission Date: 20050727
  Serious: Yes (Hospitalization)
  Sender: FDA-Public Use
  Company Number: USA050291361

PATIENT
  Age: 79 Year
  Sex: Female

DRUGS (2)
  1. FORTEO [Suspect]
     Indication: OSTEOPOROSIS
     Dates: start: 20050217
  2. FOSAMAX [Concomitant]

REACTIONS (3)
  - BACK PAIN [None]
  - CHEST WALL PAIN [None]
  - PHARMACEUTICAL PRODUCT COMPLAINT [None]
